FAERS Safety Report 23379020 (Version 3)
Quarter: 2024Q1

REPORT INFORMATION
  Report Type: Spontaneous
  Country: BR (occurrence: BR)
  Receive Date: 20240108
  Receipt Date: 20240214
  Transmission Date: 20240410
  Serious: Yes (Life-Threatening, Hospitalization, Other)
  Sender: FDA-Public Use
  Company Number: BR-002147023-NVSC2024BR002189

PATIENT
  Sex: Male
  Weight: 53 kg

DRUGS (5)
  1. ENTRESTO [Interacting]
     Active Substance: SACUBITRIL\VALSARTAN
     Indication: Product used for unknown indication
     Dosage: 50 MG, Q12H
     Route: 048
     Dates: start: 2022
  2. ROSUVASTATIN [Interacting]
     Active Substance: ROSUVASTATIN
     Indication: Product used for unknown indication
     Dosage: 20 MG, QD (ONCE AT NIGHT)
     Route: 048
  3. ASPIRIN [Concomitant]
     Active Substance: ASPIRIN
     Indication: Product used for unknown indication
     Dosage: 100 MG, QD (1 TABLET ONCE AT LUNCH)
     Route: 048
  4. SPIRONOLACTONE [Concomitant]
     Active Substance: SPIRONOLACTONE
     Indication: Product used for unknown indication
     Dosage: 25 MG, QD
     Route: 048
  5. BISOPROLOL [Concomitant]
     Active Substance: BISOPROLOL\BISOPROLOL FUMARATE
     Indication: Product used for unknown indication
     Dosage: 5 MG, QD
     Route: 048

REACTIONS (15)
  - Platelet disorder [Unknown]
  - Acute leukaemia [Recovering/Resolving]
  - Dyspnoea [Unknown]
  - Infarction [Recovered/Resolved]
  - Leukaemia [Unknown]
  - Pneumonia [Recovering/Resolving]
  - Pulmonary oedema [Recovering/Resolving]
  - Candida infection [Unknown]
  - Haematocrit abnormal [Unknown]
  - Haemoglobin abnormal [Unknown]
  - Drug interaction [Unknown]
  - White blood cell count decreased [Unknown]
  - C-reactive protein increased [Unknown]
  - Hepatic pain [Unknown]
  - Discomfort [Unknown]

NARRATIVE: CASE EVENT DATE: 20220101
